FAERS Safety Report 5485569-0 (Version None)
Quarter: 2007Q4

REPORT INFORMATION
  Report Type: 
  Country: None (occurrence: None)
  Receive Date: 20071015
  Receipt Date: 20071012
  Transmission Date: 20080405
  Serious: Yes (Other)
  Sender: FDA-Public Use
  Company Number: GBWYE350021SEP07

PATIENT
  Sex: Male
  Weight: 100 kg

DRUGS (10)
  1. SIROLIMUS [Suspect]
     Indication: MULTIPLE MYELOMA
     Route: 048
     Dates: start: 20070925
  2. SIROLIMUS [Suspect]
     Route: 048
     Dates: start: 20070823, end: 20070920
  3. CYCLOPHOSPHAMIDE [Concomitant]
     Indication: MULTIPLE MYELOMA
     Route: 048
     Dates: start: 20070823, end: 20070913
  4. VIGAM S [Concomitant]
     Indication: MULTIPLE MYELOMA
     Route: 042
     Dates: start: 20070726, end: 20070920
  5. COTRIM [Concomitant]
     Indication: PROPHYLAXIS
     Route: 048
     Dates: start: 20070823, end: 20070920
  6. ACYCLOVIR [Concomitant]
     Indication: PROPHYLAXIS
     Route: 048
     Dates: start: 20070823, end: 20070920
  7. PAMIDRONATE DISODIUM [Concomitant]
     Indication: MULTIPLE MYELOMA
     Route: 042
     Dates: start: 20070726, end: 20070920
  8. DEXAMETHASONE 0.5MG TAB [Concomitant]
     Indication: MULTIPLE MYELOMA
     Route: 048
     Dates: start: 20070823, end: 20070826
  9. DEXAMETHASONE 0.5MG TAB [Concomitant]
     Dosage: 15-18MG DAILY
     Route: 048
     Dates: start: 20070906, end: 20070909
  10. OMEPRAZOLE [Concomitant]
     Indication: DYSPEPSIA
     Route: 048
     Dates: start: 20070823, end: 20070920

REACTIONS (1)
  - SKIN FISSURES [None]
